FAERS Safety Report 7902433-5 (Version None)
Quarter: 2011Q4

REPORT INFORMATION
  Report Type: 
  Country: None (occurrence: None)
  Receive Date: 20111108
  Receipt Date: 20111102
  Transmission Date: 20120403
  Serious: Yes (Other)
  Sender: FDA-Public Use
  Company Number: CN-ASTRAZENECA-2011SE66075

PATIENT
  Sex: Female

DRUGS (4)
  1. FENTANYL-100 [Suspect]
     Indication: ANAESTHESIA
     Route: 042
  2. REMIFENTANIL [Suspect]
     Indication: ANAESTHESIA
     Route: 042
  3. PROPOFOL [Suspect]
     Indication: ANAESTHESIA
     Route: 042
  4. PROPOFOL [Suspect]
     Route: 042

REACTIONS (3)
  - ABDOMINAL PAIN [None]
  - RESPIRATORY DEPRESSION [None]
  - MOVEMENT DISORDER [None]
